FAERS Safety Report 25439556 (Version 1)
Quarter: 2025Q2

REPORT INFORMATION
  Report Type: Spontaneous
  Country: VN (occurrence: VN)
  Receive Date: 20250616
  Receipt Date: 20250616
  Transmission Date: 20250717
  Serious: Yes (Hospitalization)
  Sender: DAIICHI
  Company Number: VN-DSJP-DS-2025-147370-VN

PATIENT
  Age: 85 Year
  Sex: Female

DRUGS (13)
  1. EDOXABAN [Suspect]
     Active Substance: EDOXABAN
     Indication: Left ventricular failure
     Dosage: 30MG EDOXABAN A DAY (1/2 TABLET 60MG)
     Route: 048
     Dates: start: 20250602, end: 20250610
  2. EDOXABAN [Suspect]
     Active Substance: EDOXABAN
     Indication: Myocardial ischaemia
  3. EDOXABAN [Suspect]
     Active Substance: EDOXABAN
     Indication: Tricuspid valve stenosis
  4. EDOXABAN [Suspect]
     Active Substance: EDOXABAN
     Indication: Mitral valve stenosis
  5. BONCINCO [Concomitant]
     Indication: Product used for unknown indication
     Route: 065
  6. SPIRONOLACTONE [Concomitant]
     Active Substance: SPIRONOLACTONE
     Indication: Product used for unknown indication
     Route: 065
  7. EMPAGLIFLOZIN [Concomitant]
     Active Substance: EMPAGLIFLOZIN
     Indication: Product used for unknown indication
     Route: 065
  8. LINAGLIPTIN [Concomitant]
     Active Substance: LINAGLIPTIN
     Indication: Product used for unknown indication
     Route: 065
  9. ATORVASTATIN [Concomitant]
     Active Substance: ATORVASTATIN
     Indication: Product used for unknown indication
     Route: 065
  10. VALSARTAN [Concomitant]
     Active Substance: VALSARTAN
     Indication: Product used for unknown indication
     Route: 065
  11. PANTOPRAZOLE [Concomitant]
     Active Substance: PANTOPRAZOLE
     Indication: Product used for unknown indication
     Route: 065
  12. PREDNISOLONE [Concomitant]
     Active Substance: PREDNISOLONE
     Indication: Product used for unknown indication
     Route: 065
  13. INSULIN ASPART [Concomitant]
     Active Substance: INSULIN ASPART
     Indication: Product used for unknown indication
     Route: 065

REACTIONS (4)
  - Insomnia [Unknown]
  - Lethargy [Unknown]
  - Haematochezia [Not Recovered/Not Resolved]
  - Wrong technique in product usage process [Unknown]

NARRATIVE: CASE EVENT DATE: 20250602
